FAERS Safety Report 20299554 (Version 1)
Quarter: 2022Q1

REPORT INFORMATION
  Report Type: Spontaneous
  Country: DE (occurrence: DE)
  Receive Date: 20220105
  Receipt Date: 20220105
  Transmission Date: 20220423
  Serious: Yes (Hospitalization)
  Sender: FDA-Public Use
  Company Number: DE-ADRED-06922-01

PATIENT
  Age: 85 Year
  Sex: Female
  Weight: 79.8 kg

DRUGS (13)
  1. DULOXETINE [Interacting]
     Active Substance: DULOXETINE
     Indication: Product used for unknown indication
     Dosage: 60 MILLIGRAM (60 MG, 1-0-0-0, RETARD-KAPSELN)
     Route: 048
  2. VALSARTAN [Interacting]
     Active Substance: VALSARTAN
     Indication: Product used for unknown indication
     Dosage: 320 MILLIGRAM (320 MG, 1-0-0-0, TABLETTEN)
     Route: 048
  3. METFORMIN [Interacting]
     Active Substance: METFORMIN HYDROCHLORIDE
     Indication: Product used for unknown indication
     Dosage: 1000 MILLIGRAM (1000 MG, 0.5-0-0.5-0, TABLETTEN)
     Route: 048
  4. MELPERONE [Suspect]
     Active Substance: MELPERONE
     Indication: Product used for unknown indication
     Dosage: 25 MILLIGRAM (25 MG, 0-0-0-0.5, TABLETTEN)
     Route: 048
  5. TORSEMIDE [Interacting]
     Active Substance: TORSEMIDE
     Indication: Product used for unknown indication
     Dosage: 5 MILLIGRAM (5 MG, 1-0-0-0, TABLETTEN)
     Route: 048
  6. ACETAMINOPHEN [Concomitant]
     Active Substance: ACETAMINOPHEN
     Dosage: 500 MILLIGRAM (500 MG, 1-0-1-0, TABLETTEN)
     Route: 048
  7. MINOXIDIL [Concomitant]
     Active Substance: MINOXIDIL
     Dosage: 10 MILLIGRAM (10 MG, 0.5-0-0.5-0, TABLETTEN)
     Route: 048
  8. PHENPROCOUMON [Concomitant]
     Active Substance: PHENPROCOUMON
     Dosage: 3 MILLIGRAM (3 MG, 0-0-1-0, TABLETTEN)
     Route: 048
  9. LERCANIDIPINE [Concomitant]
     Active Substance: LERCANIDIPINE
     Dosage: 10 MILLIGRAM (10 MG, 1-0-1-0, TABLETTEN)
     Route: 048
  10. BISOPROLOL [Concomitant]
     Active Substance: BISOPROLOL
     Dosage: 5 MILLIGRAM (5 MG, 1-0-1-0, TABLETTEN)
     Route: 048
  11. DIGITOXIN [Concomitant]
     Active Substance: DIGITOXIN
     Dosage: 0.07 MILLIGRAM (0.07 MG, 1-0-0-0, TABLETTEN)
     Route: 048
  12. FOSTER [Concomitant]
     Active Substance: BECLOMETHASONE\FORMOTEROL
     Dosage: 100|6 ?G, 2-0-2-0, DOSIERAEROSOL
     Route: 055
  13. LEVOTHYROXINE [Concomitant]
     Active Substance: LEVOTHYROXINE
     Dosage: 50 MICROGRAM (50 ?G, 1-0-0-0, TABLETTEN)
     Route: 048

REACTIONS (8)
  - Dyspnoea [Recovering/Resolving]
  - Hypertension [Recovering/Resolving]
  - Atrial fibrillation [Recovering/Resolving]
  - Tachycardia [Recovering/Resolving]
  - Labelled drug-drug interaction medication error [Unknown]
  - Product monitoring error [Unknown]
  - Contraindicated product administered [Unknown]
  - Product administration error [Unknown]
